FAERS Safety Report 8287655-9 (Version None)
Quarter: 2012Q2

REPORT INFORMATION
  Report Type: 
  Country: None (occurrence: None)
  Receive Date: 20120416
  Receipt Date: 20120411
  Transmission Date: 20120825
  Serious: Yes (Other)
  Sender: FDA-Public Use
  Company Number: PHEH2012US007769

PATIENT
  Sex: Female

DRUGS (9)
  1. ADVAIR DISKUS 100/50 [Concomitant]
  2. CARBAMAZEPINE [Suspect]
     Dosage: 200 MG, UNK
  3. SINGULAIR [Concomitant]
  4. PRAVIX [Concomitant]
  5. LISINOPRIL [Concomitant]
  6. SPIRIVA [Concomitant]
  7. PROVENTRO [Concomitant]
  8. LAMINTIL [Concomitant]
  9. ZOCOR [Concomitant]

REACTIONS (1)
  - CONVULSION [None]
